FAERS Safety Report 8273321-2 (Version None)
Quarter: 2012Q2

REPORT INFORMATION
  Report Type: 
  Country: None (occurrence: None)
  Receive Date: 20120411
  Receipt Date: 20120402
  Transmission Date: 20120825
  Serious: Yes (Hospitalization, Other)
  Sender: FDA-Public Use
  Company Number: PHHY2012FR028791

PATIENT
  Sex: Female

DRUGS (5)
  1. VOLTAREN [Suspect]
     Indication: BACK PAIN
     Dosage: 1 %, QD
     Route: 003
     Dates: start: 20111201, end: 20120204
  2. CRESTOR [Suspect]
     Dosage: 5 MG, QD
     Dates: start: 20100101, end: 20120204
  3. LYRICA [Suspect]
     Dosage: 75 MG, QD
     Dates: start: 20110101, end: 20120204
  4. RABEPRAZOLE SODIUM [Suspect]
     Dosage: 2 DF, QD
     Dates: start: 20110101, end: 20120204
  5. VALSARTAN  AND HYDROCHLOROTHIAZIDE [Suspect]
     Indication: HYPERTENSION
     Dosage: 1 DF (160 MG VALS AND 12.5 MG HCTZ), QD
     Route: 048
     Dates: start: 20110101, end: 20120204

REACTIONS (6)
  - RENAL IMPAIRMENT [None]
  - SHOCK [None]
  - RENAL FAILURE ACUTE [None]
  - BLOOD CREATININE INCREASED [None]
  - CREATININE RENAL CLEARANCE DECREASED [None]
  - PULMONARY EMBOLISM [None]
